FAERS Safety Report 11968682 (Version 1)
Quarter: 2016Q1

REPORT INFORMATION
  Report Type: Spontaneous
  Country: US (occurrence: US)
  Receive Date: 20160128
  Receipt Date: 20160128
  Transmission Date: 20160526
  Serious: No
  Sender: FDA-Public Use
  Company Number: US-009507513-1601USA003262

PATIENT
  Sex: Female

DRUGS (1)
  1. SOLARCAINE [Suspect]
     Active Substance: .ALPHA.-TOCOPHEROL\ALOE VERA LEAF\GLYCERIN\LIDOCAINE\PARABENS

REACTIONS (2)
  - Drug hypersensitivity [Not Recovered/Not Resolved]
  - Pruritus [Not Recovered/Not Resolved]
